FAERS Safety Report 4599149-2 (Version None)
Quarter: 2005Q1

REPORT INFORMATION
  Report Type: 
  Country: None (occurrence: None)
  Receive Date: 20050303
  Receipt Date: 20050210
  Transmission Date: 20050727
  Serious: Yes (Hospitalization, Other)
  Sender: FDA-Public Use
  Company Number: USA041285064

PATIENT
  Age: 79 Year
  Sex: Female

DRUGS (12)
  1. FORTEO [Suspect]
     Indication: OSTEOPOROSIS
     Dosage: 20 UG/1 DAY
     Dates: start: 20040301
  2. GLUCOPHAGE [Concomitant]
  3. NEURONTIN (GABAPENTIN PFIZER) [Concomitant]
  4. LEVOXYL [Concomitant]
  5. DETROL LA [Concomitant]
  6. GLUCOTROL XL [Concomitant]
  7. ACTOS [Concomitant]
  8. HYZAAR [Concomitant]
  9. TRICOR [Concomitant]
  10. VERAPAMIL [Concomitant]
  11. ARTHROTEC [Concomitant]
  12. COREG [Concomitant]

REACTIONS (7)
  - BLOOD GLUCOSE ABNORMAL [None]
  - BLOOD GLUCOSE INCREASED [None]
  - DIALYSIS [None]
  - IMPAIRED HEALING [None]
  - PHARMACEUTICAL PRODUCT COMPLAINT [None]
  - PNEUMONIA [None]
  - RENAL IMPAIRMENT [None]
